FAERS Safety Report 5372184-2 (Version None)
Quarter: 2007Q2

REPORT INFORMATION
  Report Type: 
  Country: None (occurrence: None)
  Receive Date: 20070627
  Receipt Date: 20070625
  Transmission Date: 20071010
  Serious: Yes (Hospitalization)
  Sender: FDA-Public Use
  Company Number: A0659987A

PATIENT
  Age: 54 Year
  Sex: Male

DRUGS (3)
  1. ADVAIR DISKUS 100/50 [Suspect]
     Indication: DRUG USE FOR UNKNOWN INDICATION
     Dosage: 1PUFF THREE TIMES PER DAY
     Route: 055
     Dates: start: 20060601, end: 20070620
  2. LEVAQUIN [Concomitant]
  3. PREDNISONE TAB [Concomitant]

REACTIONS (4)
  - DYSPHONIA [None]
  - LOSS OF CONSCIOUSNESS [None]
  - OXYGEN SATURATION DECREASED [None]
  - PNEUMONIA [None]
